FAERS Safety Report 13668174 (Version 13)
Quarter: 2021Q4

REPORT INFORMATION
  Report Type: Spontaneous
  Country: US (occurrence: US)
  Receive Date: 20170620
  Receipt Date: 20211130
  Transmission Date: 20220303
  Serious: Yes (Other)
  Sender: FDA-Public Use
  Company Number: US-PFIZER INC-2017267307

PATIENT
  Age: 58 Year
  Sex: Female
  Weight: 78 kg

DRUGS (1)
  1. XELJANZ [Suspect]
     Active Substance: TOFACITINIB CITRATE
     Indication: Rheumatoid arthritis
     Dosage: 5 MG, 2X/DAY
     Route: 048

REACTIONS (10)
  - Myocardial infarction [Unknown]
  - Drug ineffective [Unknown]
  - Herpes zoster [Recovered/Resolved]
  - Rash [Recovered/Resolved]
  - Nasopharyngitis [Unknown]
  - Feeling abnormal [Recovering/Resolving]
  - Pain in extremity [Recovering/Resolving]
  - Dysstasia [Unknown]
  - Gait disturbance [Unknown]
  - Foot deformity [Unknown]

NARRATIVE: CASE EVENT DATE: 20181001
